FAERS Safety Report 5897798-2 (Version None)
Quarter: 2008Q3

REPORT INFORMATION
  Report Type: 
  Country: None (occurrence: None)
  Receive Date: 20080924
  Receipt Date: 20080924
  Transmission Date: 20090109
  Serious: No
  Sender: FDA-Public Use
  Company Number: None

PATIENT
  Age: 59 Year
  Sex: Male
  Weight: 83.9154 kg

DRUGS (1)
  1. LUNESTA [Suspect]
     Indication: SLEEP DISORDER THERAPY
     Dosage: 2MG. 1/DAY, 1 NIGHT
     Dates: start: 20080825, end: 20080825

REACTIONS (1)
  - DEAFNESS UNILATERAL [None]
